FAERS Safety Report 10186415 (Version 1)
Quarter: 2014Q2

REPORT INFORMATION
  Report Type: Spontaneous
  Country: US (occurrence: US)
  Receive Date: 20140521
  Receipt Date: 20140521
  Transmission Date: 20141212
  Serious: No
  Sender: FDA-Public Use
  Company Number: US-ASTRAZENECA-2013SE81744

PATIENT
  Sex: Female

DRUGS (2)
  1. PULMICORT FLEXHALER [Suspect]
     Indication: ASTHMA
     Dosage: 1 PUFF, BID
     Route: 055
  2. VENTOLIN [Concomitant]
     Indication: ASTHMA
     Dosage: NR PRN

REACTIONS (2)
  - Paraesthesia oral [Unknown]
  - Off label use [Unknown]
